FAERS Safety Report 9788314 (Version 2)
Quarter: 2013Q4

REPORT INFORMATION
  Report Type: Spontaneous
  Country: US (occurrence: US)
  Receive Date: 20131230
  Receipt Date: 20131230
  Transmission Date: 20140711
  Serious: Yes (Other)
  Sender: FDA-Public Use
  Company Number: US-GE HEALTHCARE MEDICAL DIAGNOSTICS-OSCN-PR-1110S-0199

PATIENT
  Sex: Male

DRUGS (4)
  1. OMNISCAN [Suspect]
     Indication: RENAL FAILURE CHRONIC
     Dates: start: 20030717, end: 20030717
  2. OMNISCAN [Suspect]
     Indication: DEEP VEIN THROMBOSIS
     Dates: start: 20031024, end: 20031024
  3. GADOLINIUM (UNSPECIFIED) [Suspect]
     Indication: RENAL FAILURE CHRONIC
     Dates: start: 20030717, end: 20030717
  4. GADOLINIUM (UNSPECIFIED) [Suspect]
     Indication: DEEP VEIN THROMBOSIS
     Dates: start: 20031024, end: 20031024

REACTIONS (8)
  - Nephrogenic systemic fibrosis [Not Recovered/Not Resolved]
  - Cardiomyopathy [Not Recovered/Not Resolved]
  - Renal failure [Not Recovered/Not Resolved]
  - Rash [Not Recovered/Not Resolved]
  - Skin exfoliation [Not Recovered/Not Resolved]
  - Mobility decreased [Not Recovered/Not Resolved]
  - Arthralgia [Not Recovered/Not Resolved]
  - Muscular weakness [Not Recovered/Not Resolved]
